FAERS Safety Report 25832779 (Version 1)
Quarter: 2025Q3

REPORT INFORMATION
  Report Type: Spontaneous
  Country: EU (occurrence: EU)
  Receive Date: 20250922
  Receipt Date: 20250922
  Transmission Date: 20251021
  Serious: Yes (Other)
  Sender: BEXIMCO PHARMACEUTICALS
  Company Number: EU-BEXIMCO-2025BEX00052

PATIENT
  Age: 78 Year
  Sex: Female

DRUGS (3)
  1. METFORMIN HYDROCHLORIDE [Suspect]
     Active Substance: METFORMIN HYDROCHLORIDE
     Dosage: 850 MG HALF A TABLET IN THE MORNING AND EVENING
  2. BISOPROLOL FUMARATE [Suspect]
     Active Substance: BISOPROLOL FUMARATE
     Dosage: 5 MG HALF A TABLET IN THE MORNING
  3. AMLODIPINE, VALSARTAN AND HYDROCHLOROTHIAZIDE [Suspect]
     Active Substance: AMLODIPINE BESYLATE\HYDROCHLOROTHIAZIDE\VALSARTAN
     Dosage: 5/160/12.5 MG ONCE IN THE EVENING
     Dates: start: 2022

REACTIONS (1)
  - Basal cell carcinoma [Recovering/Resolving]
